FAERS Safety Report 6558844-6 (Version None)
Quarter: 2010Q1

REPORT INFORMATION
  Report Type: 
  Country: None (occurrence: None)
  Receive Date: 20100129
  Receipt Date: 20100119
  Transmission Date: 20100710
  Serious: Yes (Other)
  Sender: FDA-Public Use
  Company Number: CA-ABBOTT-10P-028-0620436-00

PATIENT
  Sex: Male
  Weight: 63.56 kg

DRUGS (14)
  1. HUMIRA [Suspect]
     Indication: RHEUMATOID ARTHRITIS
     Route: 058
     Dates: start: 20090313, end: 20091201
  2. ACTONEL [Concomitant]
     Indication: DRUG USE FOR UNKNOWN INDICATION
  3. FLOMAX [Concomitant]
     Indication: DRUG USE FOR UNKNOWN INDICATION
  4. LOSEC [Concomitant]
     Indication: DRUG USE FOR UNKNOWN INDICATION
  5. APO-PREDNISONE [Concomitant]
     Indication: DRUG USE FOR UNKNOWN INDICATION
  6. SANDOZ-BISOPROLOL [Concomitant]
     Indication: DRUG USE FOR UNKNOWN INDICATION
  7. PALAFER [Concomitant]
     Indication: DRUG USE FOR UNKNOWN INDICATION
  8. NEOCAL-D [Concomitant]
     Indication: DRUG USE FOR UNKNOWN INDICATION
  9. IMDUR [Concomitant]
     Indication: DRUG USE FOR UNKNOWN INDICATION
  10. NORVASC [Concomitant]
     Indication: DRUG USE FOR UNKNOWN INDICATION
  11. PRINZIDE [Concomitant]
     Indication: DRUG USE FOR UNKNOWN INDICATION
  12. ASAPHEN [Concomitant]
     Indication: DRUG USE FOR UNKNOWN INDICATION
  13. PRAVACHOL [Concomitant]
     Indication: DRUG USE FOR UNKNOWN INDICATION
  14. LISINOPRIL [Concomitant]
     Indication: DRUG USE FOR UNKNOWN INDICATION

REACTIONS (8)
  - ACNE [None]
  - CHEST PAIN [None]
  - CHILLS [None]
  - FALL [None]
  - LOSS OF CONSCIOUSNESS [None]
  - RASH ERYTHEMATOUS [None]
  - VISION BLURRED [None]
  - VISUAL IMPAIRMENT [None]
